FAERS Safety Report 5768220-1 (Version None)
Quarter: 2008Q2

REPORT INFORMATION
  Report Type: 
  Country: None (occurrence: None)
  Receive Date: 20080609
  Receipt Date: 20080526
  Transmission Date: 20081010
  Serious: Yes (Hospitalization)
  Sender: FDA-Public Use
  Company Number: CIP08000973

PATIENT
  Age: 72 Year
  Sex: Female

DRUGS (8)
  1. RISEDRONATE SODIUM [Suspect]
     Indication: OSTEOPOROSIS
     Dosage: 2.5 MG DAILY, ORAL
     Route: 048
     Dates: start: 20040710, end: 20080414
  2. LASIX /0032601/ (FUROSEMIDE) [Concomitant]
  3. VOLTAREN /00372301/ (DICLOFENAC) [Concomitant]
  4. OPALMON (LIMAPROST) [Concomitant]
  5. METHYCOBAL /00056201/ (CYANOCOBALAMIN) [Concomitant]
  6. LOXONIN /00890701/ (LOXOPROFEN) [Concomitant]
  7. SELBEX (TEPRENONE) [Concomitant]
  8. ALFAROL (ALFACALCIDOL) [Concomitant]

REACTIONS (1)
  - OSTEITIS [None]
